FAERS Safety Report 19068566 (Version 1)
Quarter: 2021Q1

REPORT INFORMATION
  Report Type: Spontaneous
  Country: US (occurrence: US)
  Receive Date: 20210329
  Receipt Date: 20210329
  Transmission Date: 20210420
  Serious: No
  Sender: FDA-Public Use
  Company Number: US-PFIZER INC-2021183317

PATIENT
  Age: 75 Year
  Sex: Male
  Weight: 83.9 kg

DRUGS (1)
  1. VANCOMYCIN HCL [Suspect]
     Active Substance: VANCOMYCIN HYDROCHLORIDE
     Dosage: UNK

REACTIONS (5)
  - Drug hypersensitivity [Unknown]
  - Chills [Unknown]
  - Vision blurred [Recovered/Resolved]
  - Chest discomfort [Unknown]
  - Throat tightness [Unknown]
